FAERS Safety Report 5619986-2 (Version None)
Quarter: 2008Q1

REPORT INFORMATION
  Report Type: 
  Country: None (occurrence: None)
  Receive Date: 20080208
  Receipt Date: 20080201
  Transmission Date: 20080703
  Serious: Yes (Death, Hospitalization)
  Sender: FDA-Public Use
  Company Number: US-ROCHE-545377

PATIENT
  Age: 67 Year
  Sex: Female
  Weight: 46 kg

DRUGS (2)
  1. CAPECITABINE [Suspect]
     Indication: PANCREATIC CARCINOMA
     Dosage: GIVEN FOR 14 DAYS, FOLLOWED BY 7 DAYS OFF.
     Route: 048
     Dates: start: 20070816, end: 20080118
  2. SU11248 [Suspect]
     Indication: PANCREATIC CARCINOMA
     Dosage: GIVEN FOR 14 DAYS, FOLLOWED BY 7 DAYS OFF.
     Route: 048
     Dates: start: 20070816, end: 20080118

REACTIONS (1)
  - INTESTINAL PERFORATION [None]
